FAERS Safety Report 15004122 (Version 1)
Quarter: 2018Q2

REPORT INFORMATION
  Report Type: Report from Study
  Country: CL (occurrence: CL)
  Receive Date: 20180613
  Receipt Date: 20180613
  Transmission Date: 20180711
  Serious: Yes (Hospitalization, Other)
  Sender: FDA-Public Use
  Company Number: CL-BRISTOL-MYERS SQUIBB COMPANY-BMS-2018-014987

PATIENT
  Sex: Female

DRUGS (2)
  1. DASATINIB. [Suspect]
     Active Substance: DASATINIB
     Indication: CHRONIC MYELOID LEUKAEMIA
     Dosage: 140 MG, QD
     Route: 048
  2. DASATINIB. [Suspect]
     Active Substance: DASATINIB
     Indication: PRODUCT USED FOR UNKNOWN INDICATION
     Dosage: 70 MG, Q12H
     Route: 048
     Dates: start: 20180110

REACTIONS (6)
  - Diarrhoea [Recovering/Resolving]
  - Laboratory test abnormal [Unknown]
  - Lymphocyte count decreased [Unknown]
  - Bone marrow disorder [Unknown]
  - Prescribed overdose [Unknown]
  - Neutrophil count decreased [Unknown]
